FAERS Safety Report 21723407 (Version 1)
Quarter: 2022Q4

REPORT INFORMATION
  Report Type: Spontaneous
  Country: US (occurrence: US)
  Receive Date: 20221213
  Receipt Date: 20221213
  Transmission Date: 20230113
  Serious: No
  Sender: FDA-Public Use
  Company Number: US-MYLANLABS-2022M1136663

PATIENT
  Sex: Female

DRUGS (7)
  1. AMLODIPINE [Interacting]
     Active Substance: AMLODIPINE BESYLATE
     Indication: Blood pressure abnormal
     Dosage: 2.5 MILLIGRAM, QD (EVERY MORNING)
     Route: 065
  2. PAXLOVID [Interacting]
     Active Substance: NIRMATRELVIR\RITONAVIR
     Indication: COVID-19
     Dosage: 300MG AND 100MG
     Route: 065
     Dates: start: 20221130
  3. NONI JUICE [Concomitant]
     Active Substance: NONI FRUIT JUICE
     Indication: Nutritional supplementation
     Dosage: TAKES 1/8 CUP, OR 2 TABLESPOONS, TAKES FIRST THING, WHEN SHE GETS UP
     Route: 065
  4. VITAMIN D3 [Concomitant]
     Active Substance: CHOLECALCIFEROL
     Dosage: 125 MICROGRAM, QD ( 5,000IU)
     Route: 065
  5. FISH OIL [Concomitant]
     Active Substance: FISH OIL
     Indication: Cardiac disorder
     Dosage: BID (2 EVERY DAY)
     Route: 065
  6. DIETARY SUPPLEMENT [Concomitant]
     Active Substance: DIETARY SUPPLEMENT
     Indication: Cardiac disorder
     Dosage: 100 GRAM, QD
     Route: 065
  7. COENZYME Q10 + CARNITIN [Concomitant]
     Indication: Cardiac disorder
     Dosage: QD (30/250 MILLIGRAM)
     Route: 065

REACTIONS (1)
  - Drug interaction [Unknown]
